FAERS Safety Report 11701244 (Version 5)
Quarter: 2017Q2

REPORT INFORMATION
  Report Type: Spontaneous
  Country: CH (occurrence: CH)
  Receive Date: 20151105
  Receipt Date: 20170524
  Transmission Date: 20170829
  Serious: Yes (Other)
  Sender: FDA-Public Use
  Company Number: CH-PFIZER INC-2015363228

PATIENT
  Age: 62 Year
  Sex: Male

DRUGS (6)
  1. BILAXTEN [Suspect]
     Active Substance: BILASTINE
     Dosage: 20 MG, 3X/DAY
     Route: 048
  2. BILAXTEN [Suspect]
     Active Substance: BILASTINE
     Dosage: UP TO 4-FOLD DOSAGE
  3. SORTIS [Suspect]
     Active Substance: ATORVASTATIN
     Dosage: UNK
     Route: 048
  4. JARDIANCE [Suspect]
     Active Substance: EMPAGLIFLOZIN
     Dosage: UNK
  5. ZANIDIP [Suspect]
     Active Substance: LERCANIDIPINE HYDROCHLORIDE
     Dosage: UNK
  6. BILAXTEN [Suspect]
     Active Substance: BILASTINE
     Indication: URTICARIA CHRONIC
     Dosage: 20 MG, DAILY
     Route: 048

REACTIONS (4)
  - Phimosis [Unknown]
  - Overdose [Not Recovered/Not Resolved]
  - Drug ineffective [Unknown]
  - Lichen sclerosus [Unknown]
